FAERS Safety Report 9629375 (Version 1)
Quarter: 2013Q4

REPORT INFORMATION
  Report Type: Spontaneous
  Country: US (occurrence: US)
  Receive Date: 20131017
  Receipt Date: 20131017
  Transmission Date: 20140711
  Serious: No
  Sender: FDA-Public Use
  Company Number: US-ASTRAZENECA-2013SE58705

PATIENT
  Age: 61 Year
  Sex: Female
  Weight: 79.4 kg

DRUGS (5)
  1. NEXIUM [Suspect]
     Indication: GASTROOESOPHAGEAL REFLUX DISEASE
     Dosage: DAILY
     Route: 048
     Dates: start: 2011, end: 2012
  2. CRESTOR [Suspect]
     Indication: BLOOD CHOLESTEROL ABNORMAL
     Route: 048
     Dates: start: 201304
  3. CLARINEX [Concomitant]
     Indication: HYPERSENSITIVITY
     Route: 048
  4. CARAFATE [Concomitant]
     Indication: GASTRIC DISORDER
     Dosage: 1 TABLET BID
     Route: 048
  5. ENALAPRIL [Concomitant]
     Indication: BLOOD PRESSURE ABNORMAL
     Dosage: DAILY
     Route: 048
     Dates: start: 2011

REACTIONS (4)
  - Gastrooesophageal reflux disease [Not Recovered/Not Resolved]
  - Blood cholesterol increased [Unknown]
  - Chest pain [Unknown]
  - Intentional drug misuse [Unknown]
